FAERS Safety Report 9658720 (Version 2)
Quarter: 2013Q4

REPORT INFORMATION
  Report Type: Spontaneous
  Country: US (occurrence: US)
  Receive Date: 20131030
  Receipt Date: 20131030
  Transmission Date: 20140711
  Serious: No
  Sender: FDA-Public Use
  Company Number: US-PURDUE-USA-2011-0076074

PATIENT
  Sex: Female

DRUGS (2)
  1. OXYCONTIN (NDA 22-272) [Suspect]
     Indication: BACK PAIN
     Dosage: 20 MG, UNK
  2. GABAPENTIN [Concomitant]

REACTIONS (4)
  - Decreased activity [Unknown]
  - Pain [Unknown]
  - Pruritus [Unknown]
  - Insomnia [Unknown]
